FAERS Safety Report 8574028-4 (Version None)
Quarter: 2012Q3

REPORT INFORMATION
  Report Type: 
  Country: None (occurrence: None)
  Receive Date: 20120806
  Receipt Date: 20120724
  Transmission Date: 20120928
  Serious: Yes (Other)
  Sender: FDA-Public Use
  Company Number: US-ELI_LILLY_AND_COMPANY-US201207007773

PATIENT
  Sex: Female

DRUGS (3)
  1. XANAX [Concomitant]
  2. CYMBALTA [Suspect]
     Dosage: 60MG, DAILY
  3. SEROQUEL [Concomitant]

REACTIONS (1)
  - RENAL FAILURE [None]
